FAERS Safety Report 5468864-0 (Version None)
Quarter: 2007Q3

REPORT INFORMATION
  Report Type: 
  Country: None (occurrence: None)
  Receive Date: 20070926
  Receipt Date: 20070918
  Transmission Date: 20080115
  Serious: Yes (Other)
  Sender: FDA-Public Use
  Company Number: US-PFIZER INC-2007078758

PATIENT
  Sex: Female
  Weight: 62.6 kg

DRUGS (4)
  1. LIPITOR [Suspect]
     Indication: BLOOD CHOLESTEROL
  2. DULOXETINE HYDROCHLORIDE [Interacting]
     Indication: BIPOLAR DISORDER
  3. RISPERIDONE [Interacting]
     Indication: BIPOLAR DISORDER
  4. LEVOTHYROXINE SODIUM [Interacting]
     Indication: HYPOTHYROIDISM

REACTIONS (3)
  - BIPOLAR DISORDER [None]
  - DRUG INTERACTION [None]
  - PAIN IN EXTREMITY [None]
